FAERS Safety Report 6487601-4 (Version None)
Quarter: 2009Q4

REPORT INFORMATION
  Report Type: 
  Country: None (occurrence: None)
  Receive Date: 20091210
  Receipt Date: 20090821
  Transmission Date: 20100525
  Serious: No
  Sender: FDA-Public Use
  Company Number: US-AMGEN-KDL361255

PATIENT
  Sex: Female

DRUGS (1)
  1. ENBREL [Suspect]
     Indication: ANKYLOSING SPONDYLITIS
     Route: 058
     Dates: start: 20090301, end: 20090301

REACTIONS (4)
  - DYSPNOEA [None]
  - JOINT SWELLING [None]
  - PAIN [None]
  - WEIGHT INCREASED [None]
